FAERS Safety Report 6553130-2 (Version None)
Quarter: 2010Q1

REPORT INFORMATION
  Report Type: 
  Country: None (occurrence: None)
  Receive Date: 20100127
  Receipt Date: 20090421
  Transmission Date: 20100710
  Serious: No
  Sender: FDA-Public Use
  Company Number: A0766324A

PATIENT
  Age: 49 Year
  Sex: Female

DRUGS (3)
  1. IMITREX [Suspect]
     Indication: MIGRAINE
     Dosage: 6MG VARIABLE DOSE
     Route: 058
     Dates: start: 20000101
  2. UNSPECIFIED MEDICATION [Concomitant]
  3. VALTREX [Concomitant]

REACTIONS (5)
  - FEELING HOT [None]
  - LOCAL SWELLING [None]
  - PAIN OF SKIN [None]
  - PRODUCT QUALITY ISSUE [None]
  - SOMNOLENCE [None]
